FAERS Safety Report 7659497-6 (Version None)
Quarter: 2011Q3

REPORT INFORMATION
  Report Type: 
  Country: None (occurrence: None)
  Receive Date: 20110805
  Receipt Date: 20110705
  Transmission Date: 20111222
  Serious: Yes (Hospitalization, Other)
  Sender: FDA-Public Use
  Company Number: US-JNJFOC-20110800570

PATIENT
  Sex: Female

DRUGS (10)
  1. LYRICA [Suspect]
     Indication: FIBROMYALGIA
     Dates: start: 20090101
  2. XANAX [Suspect]
     Indication: PAIN
     Dates: start: 20090101
  3. XANAX [Suspect]
     Indication: RELAXATION THERAPY
     Dates: start: 20090101
  4. ACETYLSALICYLIC ACID SRT [Suspect]
     Indication: PRODUCT USED FOR UNKNOWN INDICATION
     Dates: start: 20070101
  5. VICODIN [Suspect]
     Indication: PAIN
     Dates: start: 20070101
  6. SOMA [Suspect]
     Indication: PAIN
     Dates: start: 20070101
  7. MOTRIN [Suspect]
     Indication: PAIN
     Dosage: 800 MG 3-4 TIMES A DAY
     Dates: start: 20070101
  8. XANAX [Suspect]
     Indication: INSOMNIA
     Dates: start: 20090101
  9. CELEXA [Suspect]
     Indication: DEPRESSION
     Dates: start: 20090101
  10. UNKNOWN MEDICATION [Suspect]
     Indication: BLOOD PRESSURE ABNORMAL
     Dosage: 10/12.5 MG
     Dates: start: 20070101

REACTIONS (6)
  - HEADACHE [None]
  - DRUG INEFFECTIVE [None]
  - GASTRIC DISORDER [None]
  - VISUAL ACUITY REDUCED [None]
  - HYPOAESTHESIA [None]
  - TRANSIENT ISCHAEMIC ATTACK [None]
